FAERS Safety Report 6224580-9 (Version None)
Quarter: 2009Q2

REPORT INFORMATION
  Report Type: 
  Country: None (occurrence: None)
  Receive Date: 20090612
  Receipt Date: 20090320
  Transmission Date: 20091009
  Serious: No
  Sender: FDA-Public Use
  Company Number: US-ABBOTT-09P-163-0564397-00

PATIENT
  Sex: Male
  Weight: 97.61 kg

DRUGS (4)
  1. HUMIRA [Suspect]
     Indication: PSORIATIC ARTHROPATHY
     Route: 058
  2. HUMIRA [Suspect]
     Indication: PUSTULAR PSORIASIS
  3. INDOMETHACIN [Concomitant]
     Indication: INFLAMMATION
  4. VICODIN [Concomitant]
     Indication: PAIN
     Dosage: PRN

REACTIONS (1)
  - PSORIASIS [None]
